FAERS Safety Report 18619968 (Version 4)
Quarter: 2022Q1

REPORT INFORMATION
  Report Type: Report from Study
  Country: BR (occurrence: BR)
  Receive Date: 20201215
  Receipt Date: 20220211
  Transmission Date: 20220424
  Serious: Yes (Hospitalization)
  Sender: FDA-Public Use
  Company Number: BR-JNJFOC-20201222472

PATIENT
  Age: 12 Year
  Sex: Female
  Weight: 50.5 kg

DRUGS (3)
  1. INFLIXIMAB [Suspect]
     Active Substance: INFLIXIMAB
     Indication: Crohn^s disease
     Dosage: INFLIXIMAB 100 MG  INFUSE 3 VIALS IV AT WEEKS 2, 6 AND AFTER 8/8 WEEKS
     Route: 042
     Dates: start: 20201124, end: 20210201
  2. REMICADE [Suspect]
     Active Substance: INFLIXIMAB
     Indication: Crohn^s disease
     Dosage: INFLIXIMAB 100 MG  INFUSE 3 VIALS IV AT WEEKS 2, 6 AND AFTER 8/8 WEEKS
     Route: 042
     Dates: start: 20201124, end: 20210201
  3. AZATHIOPRINE [Concomitant]
     Active Substance: AZATHIOPRINE
     Indication: Crohn^s disease
     Dates: start: 202011, end: 202102

REACTIONS (5)
  - Decreased appetite [Unknown]
  - Vomiting [Unknown]
  - Abdominal pain upper [Unknown]
  - Nausea [Unknown]
  - Therapy non-responder [Unknown]

NARRATIVE: CASE EVENT DATE: 20201207
